FAERS Safety Report 14372873 (Version 1)
Quarter: 2018Q1

REPORT INFORMATION
  Report Type: Spontaneous
  Country: US (occurrence: US)
  Receive Date: 20180109
  Receipt Date: 20180109
  Transmission Date: 20180509
  Serious: Yes (Life-Threatening, Hospitalization)
  Sender: FDA-Public Use
  Company Number: None

PATIENT
  Age: 21 Year
  Sex: Female
  Weight: 68.04 kg

DRUGS (1)
  1. EMOQUETTE [Suspect]
     Active Substance: DESOGESTREL\ETHINYL ESTRADIOL
     Indication: ACNE

REACTIONS (6)
  - Tachycardia [None]
  - Bundle branch block [None]
  - Pulmonary embolism [None]
  - Left ventricular dilatation [None]
  - Bronchitis [None]
  - Dyspnoea [None]

NARRATIVE: CASE EVENT DATE: 20171222
